FAERS Safety Report 6409008-8 (Version None)
Quarter: 2009Q4

REPORT INFORMATION
  Report Type: 
  Country: None (occurrence: None)
  Receive Date: 20091019
  Receipt Date: 20091019
  Transmission Date: 20100525
  Serious: Yes (Other)
  Sender: FDA-Public Use
  Company Number: None

PATIENT
  Age: 65 Year
  Sex: Female
  Weight: 77.1115 kg

DRUGS (1)
  1. AGGRENOX [Suspect]
     Indication: CEREBROVASCULAR ACCIDENT PROPHYLAXIS
     Dosage: 25/200 B.I.D. PO
     Route: 048
     Dates: start: 20090404, end: 20090426

REACTIONS (3)
  - DISSOCIATION [None]
  - ELECTROCARDIOGRAM T WAVE INVERSION [None]
  - HEADACHE [None]
